FAERS Safety Report 12086449 (Version 1)
Quarter: 2016Q1

REPORT INFORMATION
  Report Type: Spontaneous
  Country: US (occurrence: US)
  Receive Date: 20160217
  Receipt Date: 20160217
  Transmission Date: 20160526
  Serious: No
  Sender: FDA-Public Use
  Company Number: US-ALLERGAN-1500896US

PATIENT
  Sex: Female

DRUGS (3)
  1. RESTASIS [Suspect]
     Active Substance: CYCLOSPORINE
     Dosage: 1 GTT, BID
     Route: 047
     Dates: start: 20150111
  2. RESTASIS [Suspect]
     Active Substance: CYCLOSPORINE
     Indication: DRY EYE
     Dosage: UNK UNK, QPM
     Route: 047
     Dates: start: 20141214, end: 20150111
  3. HYDRO EYE SUPPORT [Concomitant]
     Indication: ROUTINE HEALTH MAINTENANCE
     Dosage: UNK
     Route: 047

REACTIONS (3)
  - Dry eye [Unknown]
  - Inappropriate schedule of drug administration [Unknown]
  - Foreign body sensation in eyes [Unknown]
